FAERS Safety Report 18283624 (Version 2)
Quarter: 2020Q3

REPORT INFORMATION
  Report Type: Spontaneous
  Country: NO (occurrence: NO)
  Receive Date: 20200918
  Receipt Date: 20200925
  Transmission Date: 20201103
  Serious: Yes (Other)
  Sender: FDA-Public Use
  Company Number: NO-ASTRAZENECA-2020SF17797

PATIENT
  Age: 18451 Day
  Sex: Male

DRUGS (1)
  1. FORXIGA [Suspect]
     Active Substance: DAPAGLIFLOZIN
     Indication: TYPE 2 DIABETES MELLITUS
     Dosage: 10.0MG UNKNOWN
     Route: 048

REACTIONS (4)
  - Escherichia urinary tract infection [Recovered/Resolved]
  - Phimosis [Recovered/Resolved]
  - Haematuria [Recovered/Resolved]
  - Symptom recurrence [Recovered/Resolved]

NARRATIVE: CASE EVENT DATE: 20190618
